FAERS Safety Report 6207165-X (Version None)
Quarter: 2009Q2

REPORT INFORMATION
  Report Type: 
  Country: None (occurrence: None)
  Receive Date: 20090528
  Receipt Date: 20090103
  Transmission Date: 20091009
  Serious: Yes (Hospitalization, Other)
  Sender: FDA-Public Use
  Company Number: US-PFIZER INC-2008088632

PATIENT
  Age: 18 Year
  Sex: Female
  Weight: 91 kg

DRUGS (8)
  1. METHYLPREDNISOLONE SODIUM SUCCINATE [Suspect]
     Indication: JUVENILE ARTHRITIS
     Dosage: NA EVERY 4 WEEKS
     Route: 042
     Dates: start: 20080522
  2. REMICADE [Suspect]
  3. CALCIUM [Concomitant]
     Dosage: IRREGULARLY
  4. ABILIFY [Concomitant]
  5. TRAZODONE HCL [Concomitant]
  6. LISDEXAMFETAMINE DIMESYLATE [Concomitant]
     Dosage: ONCE A WEEK
     Route: 048
  7. NAPROSYN [Concomitant]
     Dosage: BID
  8. METHOTREXATE [Concomitant]
     Dosage: UNIT DOSE: 15,ONCE A WEEK
     Route: 048

REACTIONS (5)
  - CHEST PAIN [None]
  - DYSPNOEA [None]
  - ERYTHEMA [None]
  - INFUSION RELATED REACTION [None]
  - SWELLING FACE [None]
